FAERS Safety Report 16283407 (Version 2)
Quarter: 2019Q2

REPORT INFORMATION
  Report Type: Spontaneous
  Country: US (occurrence: US)
  Receive Date: 20190507
  Receipt Date: 20190518
  Transmission Date: 20190711
  Serious: Yes (Death)
  Sender: FDA-Public Use
  Company Number: PHEH2019US019511

PATIENT
  Age: 45 Year
  Sex: Male
  Weight: 83.5 kg

DRUGS (6)
  1. TAFINLAR [Suspect]
     Active Substance: DABRAFENIB MESYLATE
     Indication: MALIGNANT MELANOMA
     Dosage: 150 MG, BID
     Route: 048
     Dates: start: 20190116, end: 20190404
  2. MEKINIST [Suspect]
     Active Substance: TRAMETINIB DIMETHYL SULFOXIDE
     Indication: MALIGNANT MELANOMA
     Dosage: 2 MG, QD
     Route: 048
     Dates: start: 20190116, end: 20190404
  3. TAFINLAR [Suspect]
     Active Substance: DABRAFENIB MESYLATE
     Indication: NEOPLASM MALIGNANT
  4. TEMODAR [Suspect]
     Active Substance: TEMOZOLOMIDE
     Indication: METASTATIC MALIGNANT MELANOMA
     Dosage: 360 MG, UNK (5 DAYS)
     Route: 048
     Dates: start: 20190405, end: 20190407
  5. MEKINIST [Suspect]
     Active Substance: TRAMETINIB DIMETHYL SULFOXIDE
     Indication: NEOPLASM MALIGNANT
  6. NIVOLUMAB [Suspect]
     Active Substance: NIVOLUMAB
     Indication: METASTATIC MALIGNANT MELANOMA
     Dosage: 240 MG, QW2
     Route: 042
     Dates: start: 20181213, end: 20190404

REACTIONS (6)
  - Malignant melanoma [Fatal]
  - Neoplasm malignant [Fatal]
  - Malignant neoplasm progression [Fatal]
  - Confusional state [Unknown]
  - Aphasia [Unknown]
  - Dysarthria [Unknown]

NARRATIVE: CASE EVENT DATE: 20190404
